FAERS Safety Report 9207218 (Version 1)
Quarter: 2013Q1

REPORT INFORMATION
  Report Type: Spontaneous
  Country: US (occurrence: None)
  Receive Date: 20120731
  Receipt Date: 20120731
  Transmission Date: 20140127
  Serious: No
  Sender: FDA-Public Use
  Company Number: PHEH2012US011297

PATIENT
  Age: 64 Year
  Sex: Female

DRUGS (4)
  1. ARCAPTA [Suspect]
  2. PREDNISONE (PREDNISONE) [Concomitant]
  3. POTASSIUM (POTASSIUM) [Concomitant]
  4. SPIRIVA 9TIOTROPIUM BROMIDE) [Concomitant]

REACTIONS (1)
  - Muscle spasms [None]
